FAERS Safety Report 8920713 (Version 2)
Quarter: 2012Q4

REPORT INFORMATION
  Report Type: Report from Study
  Country: US (occurrence: US)
  Receive Date: 20121122
  Receipt Date: 20121203
  Transmission Date: 20130627
  Serious: Yes (Hospitalization)
  Sender: FDA-Public Use
  Company Number: US-ROCHE-1140778

PATIENT
  Age: 50 Year
  Sex: Male

DRUGS (32)
  1. MYCOPHENOLATE MOFETIL [Suspect]
     Indication: RENAL TRANSPLANT
     Route: 065
     Dates: start: 20070810
  2. CICLOSPORIN [Suspect]
     Indication: RENAL TRANSPLANT
     Route: 048
     Dates: start: 20060924
  3. PREDNISONE [Suspect]
     Indication: RENAL TRANSPLANT
     Route: 065
     Dates: start: 20070725
  4. ADVAIR DISKUS [Concomitant]
     Route: 065
     Dates: start: 20111013
  5. ALBUTEROL [Concomitant]
     Route: 065
     Dates: start: 20111013
  6. NORVASC [Concomitant]
     Route: 065
     Dates: start: 20091019
  7. ASPIRIN [Concomitant]
     Route: 065
     Dates: start: 20080902
  8. LIPITOR [Concomitant]
     Route: 065
     Dates: start: 20080306
  9. CALCITRIOL [Concomitant]
     Route: 065
     Dates: start: 20081114
  10. COREG [Concomitant]
     Route: 065
     Dates: start: 20111026
  11. DRISDOL [Concomitant]
     Route: 065
     Dates: start: 20090520
  12. NEXIUM [Concomitant]
     Route: 065
     Dates: start: 20070713
  13. FUROSEMIDE [Concomitant]
     Route: 065
     Dates: start: 20070725
  14. HYDRALAZINE [Concomitant]
     Route: 065
     Dates: start: 20100401
  15. LANTUS [Concomitant]
     Route: 065
     Dates: start: 20070725
  16. INSULIN REGULAR [Concomitant]
     Route: 065
     Dates: start: 20070725
  17. IMDUR [Concomitant]
     Route: 065
     Dates: start: 20111007
  18. ISORDIL [Concomitant]
     Route: 065
     Dates: start: 20111025
  19. LORTAB [Concomitant]
     Route: 065
     Dates: start: 20111004
  20. NIFEDIPINE XL [Concomitant]
     Route: 065
     Dates: start: 20100331
  21. OMEGA 3 FATTY ACIDS [Concomitant]
     Route: 065
     Dates: start: 20080902
  22. PERCOCET [Concomitant]
     Route: 065
     Dates: start: 20081210
  23. PRAVACHOL [Concomitant]
     Route: 065
     Dates: start: 20080902
  24. LYRICA [Concomitant]
     Route: 065
     Dates: start: 20120501
  25. PROAIR (UNITED STATES) [Concomitant]
     Route: 065
     Dates: start: 20111013
  26. SEROQUEL [Concomitant]
     Route: 065
     Dates: start: 20070715
  27. ZOLOFT [Concomitant]
     Route: 065
     Dates: start: 20070725
  28. K-DUR [Concomitant]
     Route: 065
     Dates: start: 20070919
  29. AUGMENTIN [Concomitant]
  30. AZITHROMYCIN [Concomitant]
     Route: 065
     Dates: start: 20121002
  31. HEPARIN [Concomitant]
  32. ALDACTONE [Concomitant]
     Route: 065
     Dates: start: 20120511, end: 20120916

REACTIONS (3)
  - Syncope [Recovered/Resolved]
  - Intracranial pressure increased [Recovered/Resolved]
  - Mental status changes [Recovered/Resolved]
